FAERS Safety Report 8899885 (Version 5)
Quarter: 2014Q2

REPORT INFORMATION
  Report Type: Report from Study
  Country: DE (occurrence: DE)
  Receive Date: 20121109
  Receipt Date: 20140404
  Transmission Date: 20141212
  Serious: Yes (Hospitalization)
  Sender: FDA-Public Use
  Company Number: PHHO2012DE015383

PATIENT
  Sex: 0

DRUGS (3)
  1. EVEROLIMUS [Suspect]
     Indication: BREAST CANCER METASTATIC
     Dosage: 10 MG, UNK
     Dates: start: 20120727, end: 20120921
  2. EXEMESTANE [Suspect]
     Indication: BREAST CANCER METASTATIC
     Dosage: 25 MG, UNK
     Dates: start: 20120727, end: 20120921
  3. RISPERIDONE [Concomitant]
     Indication: HALLUCINATION
     Dosage: 3 MG, UNK
     Route: 048
     Dates: start: 200802, end: 20120926

REACTIONS (3)
  - Alcohol induced persisting dementia [Recovered/Resolved with Sequelae]
  - Delusional disorder, unspecified type [Recovered/Resolved with Sequelae]
  - Psychotic disorder [Recovered/Resolved with Sequelae]
